FAERS Safety Report 18102783 (Version 1)
Quarter: 2020Q3

REPORT INFORMATION
  Report Type: Report from Study
  Country: None (occurrence: DE)
  Receive Date: 20200803
  Receipt Date: 20200803
  Transmission Date: 20201103
  Serious: Yes (Hospitalization)
  Sender: FDA-Public Use
  Company Number: DE-ABBVIE-20K-062-3506636-00

PATIENT
  Age: 52 Year
  Sex: Female

DRUGS (10)
  1. HUMIRA [Suspect]
     Active Substance: ADALIMUMAB
     Route: 058
     Dates: start: 201212, end: 201301
  2. HYDROXYCHLOROQUINE [Concomitant]
     Active Substance: HYDROXYCHLOROQUINE
     Indication: PRODUCT USED FOR UNKNOWN INDICATION
     Dosage: START BETWEEN 19JAN2012?16JUL2012?END BETWEEN 10JUN2014?08JAN2015
  3. HYDROXYCHLOROQUINE [Concomitant]
     Active Substance: HYDROXYCHLOROQUINE
     Dosage: START BETWEEN 10JUN2014?08JAN2015?END BETWEEN 14JAN2016?20JUL2016
  4. SULPHASALAZINE [Concomitant]
     Active Substance: SULFASALAZINE
     Indication: PRODUCT USED FOR UNKNOWN INDICATION
     Dosage: START BEFORE 15 JUL 2011?END THERAPY BETWEEN 13 OCT 2011 ? 19 JAN 2012
  5. METHOTREXATE. [Concomitant]
     Active Substance: METHOTREXATE
     Indication: PRODUCT USED FOR UNKNOWN INDICATION
     Dosage: START BETWEEN 13 OCT 2011?19 JAN 2012?END THERAPY BETWEEN 16 JUL 2012?16 JAN 2013
  6. LEFLUNOMIDE. [Concomitant]
     Active Substance: LEFLUNOMIDE
     Indication: PRODUCT USED FOR UNKNOWN INDICATION
     Dosage: START BETWEEN 19JAN2012?16JUL2012?END BETWEEN 05JUL2017?29JAN2018
  7. HUMIRA [Suspect]
     Active Substance: ADALIMUMAB
     Indication: RHEUMATOID ARTHRITIS
     Route: 058
     Dates: start: 201110, end: 201111
  8. ENBREL [Concomitant]
     Active Substance: ETANERCEPT
     Indication: PRODUCT USED FOR UNKNOWN INDICATION
     Dates: start: 201107, end: 201110
  9. SULPHASALAZINE [Concomitant]
     Active Substance: SULFASALAZINE
     Dosage: START BETWEEN 19 JAN 2012?16 JUL 2012?END THERAPY BETWEEN 16 JUL 2012?16 JAN 2013
  10. SULPHASALAZINE [Concomitant]
     Active Substance: SULFASALAZINE
     Dosage: START BETWEEN 13 OCT 2011 ? 19 JAN 2012?END THERAPY BETWEEN 19 JAN 2012 ? 16 JUL 2012

REACTIONS (1)
  - Uterine leiomyoma [Unknown]

NARRATIVE: CASE EVENT DATE: 20191213
